FAERS Safety Report 5880571-9 (Version None)
Quarter: 2008Q3

REPORT INFORMATION
  Report Type: 
  Country: None (occurrence: None)
  Receive Date: 20080912
  Receipt Date: 20080625
  Transmission Date: 20090109
  Serious: No
  Sender: FDA-Public Use
  Company Number: US-ABBOTT-08P-163-0454615-00

PATIENT
  Sex: Male
  Weight: 76.953 kg

DRUGS (17)
  1. HUMIRA [Suspect]
     Indication: CROHN'S DISEASE
     Route: 058
     Dates: start: 20080201
  2. AZATHIOPRINE [Concomitant]
     Indication: CROHN'S DISEASE
     Route: 048
     Dates: start: 20050101, end: 20080301
  3. AZATHIOPRINE [Concomitant]
     Route: 048
     Dates: start: 20080501
  4. OMEPRAZOLE [Concomitant]
     Indication: DRUG USE FOR UNKNOWN INDICATION
     Route: 048
  5. HYZAAR [Concomitant]
     Indication: HYPERTENSION
     Dosage: 50 / 12.5 MG DAILY
     Route: 048
  6. IBANDRONATE SODIUM [Concomitant]
     Indication: OSTEOPOROSIS
     Route: 048
  7. OSCAL [Concomitant]
     Indication: OSTEOPOROSIS
     Dosage: 500 DAILY
     Route: 048
  8. VITAMIN E [Concomitant]
     Indication: DRUG USE FOR UNKNOWN INDICATION
     Route: 048
  9. ASCORBIC ACID [Concomitant]
     Indication: DRUG USE FOR UNKNOWN INDICATION
     Route: 048
  10. ACETYLSALICYLIC ACID SRT [Concomitant]
     Indication: DRUG USE FOR UNKNOWN INDICATION
     Route: 048
  11. FOLIC ACID [Concomitant]
     Indication: DRUG USE FOR UNKNOWN INDICATION
     Route: 048
  12. MESALAMINE [Concomitant]
     Indication: DRUG USE FOR UNKNOWN INDICATION
     Route: 048
  13. ZINC [Concomitant]
     Indication: DRUG USE FOR UNKNOWN INDICATION
     Route: 048
  14. INSULIN [Concomitant]
     Indication: DRUG USE FOR UNKNOWN INDICATION
     Dosage: VARIABLE RATES IN A PUMP
     Route: 058
  15. PREDNISOLONE ACETATE [Concomitant]
     Indication: CATARACT
     Route: 047
     Dates: start: 20080527
  16. GATIFLOXACIN [Concomitant]
     Indication: CATARACT
     Route: 047
     Dates: start: 20080527
  17. LATANOPROST [Concomitant]
     Indication: CATARACT
     Route: 047
     Dates: start: 20080527

REACTIONS (8)
  - APTYALISM [None]
  - CANDIDIASIS [None]
  - CHAPPED LIPS [None]
  - HYPOPHAGIA [None]
  - LIP DRY [None]
  - LIP PAIN [None]
  - ORAL MUCOSAL EXFOLIATION [None]
  - STOMATITIS [None]
